FAERS Safety Report 10265992 (Version 1)
Quarter: 2014Q2

REPORT INFORMATION
  Report Type: Spontaneous
  Country: US (occurrence: US)
  Receive Date: 20140627
  Receipt Date: 20140627
  Transmission Date: 20141212
  Serious: Yes (Hospitalization, Other)
  Sender: FDA-Public Use
  Company Number: US-PFIZER INC-2014173324

PATIENT
  Age: 20 Year
  Sex: Male

DRUGS (8)
  1. SULFAMETHOXAZOLE/TRIMETHOPRIM [Suspect]
     Indication: PNEUMOCYSTIS JIROVECII PNEUMONIA
     Dosage: UNK
     Route: 042
  2. VANCOMYCIN [Concomitant]
     Indication: PNEUMOCYSTIS JIROVECII PNEUMONIA
     Dosage: UNK
  3. MEROPENEM [Concomitant]
     Indication: PNEUMOCYSTIS JIROVECII PNEUMONIA
     Dosage: UNK
  4. LEVOFLOXACIN [Concomitant]
     Indication: PNEUMOCYSTIS JIROVECII PNEUMONIA
     Dosage: UNK
  5. GANCICLOVIR [Concomitant]
     Indication: PNEUMOCYSTIS JIROVECII PNEUMONIA
     Dosage: UNK
  6. TACROLIMUS [Concomitant]
     Indication: IMMUNOSUPPRESSION
     Dosage: UNK
  7. MYCOPHENOLATE MOFETIL [Concomitant]
     Indication: IMMUNOSUPPRESSION
     Dosage: UNK
  8. IMMUNOGLOBULINS [Concomitant]
     Route: 042

REACTIONS (4)
  - Respiratory failure [Recovered/Resolved]
  - Hyponatraemia [Recovering/Resolving]
  - Inappropriate antidiuretic hormone secretion [None]
  - Ileus [None]
